FAERS Safety Report 5305437-4 (Version None)
Quarter: 2007Q2

REPORT INFORMATION
  Report Type: 
  Country: None (occurrence: None)
  Receive Date: 20070424
  Receipt Date: 20070413
  Transmission Date: 20071010
  Serious: Yes (Death)
  Sender: FDA-Public Use
  Company Number: IT-BAXTER-2007BH003667

PATIENT
  Age: 23 Year
  Sex: Male

DRUGS (2)
  1. LIDOCAINE [Suspect]
     Indication: INTENTIONAL DRUG MISUSE
     Dosage: DOSE UNIT:UNKNOWN
     Route: 042
  2. COCAINE [Concomitant]
     Indication: INTENTIONAL DRUG MISUSE
     Route: 042

REACTIONS (2)
  - INTENTIONAL DRUG MISUSE [None]
  - OVERDOSE [None]
